FAERS Safety Report 10566618 (Version 1)
Quarter: 2014Q4

REPORT INFORMATION
  Report Type: Spontaneous
  Country: US (occurrence: US)
  Receive Date: 20141105
  Receipt Date: 20141105
  Transmission Date: 20150529
  Serious: No
  Sender: FDA-Public Use
  Company Number: US-009507513-1409USA004254

PATIENT
  Sex: Female

DRUGS (2)
  1. DR. SCHOLLS CORN/CALLUS REMOVER [Suspect]
     Active Substance: SALICYLIC ACID
     Indication: HYPERKERATOSIS
  2. DR. SCHOLLS CORN/CALLUS REMOVER [Suspect]
     Active Substance: SALICYLIC ACID
     Indication: PAIN
     Dosage: UNK, UNKNOWN
     Route: 061

REACTIONS (3)
  - Tenderness [Unknown]
  - Drug effect decreased [Unknown]
  - Product quality issue [Unknown]
